FAERS Safety Report 21834483 (Version 1)
Quarter: 2023Q1

REPORT INFORMATION
  Report Type: Report from Study
  Country: US (occurrence: US)
  Receive Date: 20230108
  Receipt Date: 20230108
  Transmission Date: 20230418
  Serious: Yes (Hospitalization)
  Sender: FDA-Public Use
  Company Number: US-ABBVIE-4259555

PATIENT
  Sex: Male

DRUGS (1)
  1. IMBRUVICA [Suspect]
     Active Substance: IBRUTINIB
     Indication: Chronic lymphocytic leukaemia
     Route: 048
     Dates: end: 20221214

REACTIONS (4)
  - Pneumonia [Unknown]
  - Wrong product administered [Unknown]
  - Platelet disorder [Unknown]
  - Red blood cell count abnormal [Unknown]

NARRATIVE: CASE EVENT DATE: 20220101
